FAERS Safety Report 10018579 (Version 1)
Quarter: 2014Q1

REPORT INFORMATION
  Report Type: Spontaneous
  Country: US (occurrence: US)
  Receive Date: 20140318
  Receipt Date: 20140318
  Transmission Date: 20141002
  Serious: Yes (Hospitalization, Other)
  Sender: FDA-Public Use
  Company Number: US-BAYER-2014-038011

PATIENT
  Age: 31 Year
  Sex: Female
  Weight: 79.82 kg

DRUGS (3)
  1. YASMIN [Suspect]
  2. MUCINEX [Concomitant]
  3. NASAREL [Concomitant]

REACTIONS (3)
  - Deep vein thrombosis [None]
  - Pulmonary embolism [None]
  - Portal vein thrombosis [None]
